FAERS Safety Report 4487707-5 (Version None)
Quarter: 2004Q4

REPORT INFORMATION
  Report Type: 
  Country: None (occurrence: None)
  Receive Date: 20041027
  Receipt Date: 20041027
  Transmission Date: 20050328
  Serious: Yes (Hospitalization)
  Sender: FDA-Public Use
  Company Number: None

PATIENT
  Age: 79 Year
  Sex: Male
  Weight: 162.8413 kg

DRUGS (6)
  1. WARFARIN SODIUM [Suspect]
     Indication: DEEP VEIN THROMBOSIS
     Dosage: 7.5 MG QD EXCEPT MWF TAKE 1/2 TAB
  2. BEMETANIDE [Concomitant]
  3. GLIPIZIDE [Concomitant]
  4. LEVOTHYROENE [Concomitant]
  5. SPIRONOLACTONE [Concomitant]
  6. KCL TAB [Concomitant]

REACTIONS (3)
  - DIARRHOEA [None]
  - FAECAL OCCULT BLOOD POSITIVE [None]
  - VOMITING [None]
